FAERS Safety Report 9608651 (Version 2)
Quarter: 2013Q4

REPORT INFORMATION
  Report Type: Spontaneous
  Country: JP (occurrence: None)
  Receive Date: 20131007
  Receipt Date: 20131024
  Transmission Date: 20140711
  Serious: Yes (Other)
  Sender: FDA-Public Use
  Company Number: JP-RRD-13-00022

PATIENT
  Age: 48 Year
  Sex: Female

DRUGS (2)
  1. COSMEGEN [Suspect]
     Indication: MALIGNANT HYDATIDIFORM MOLE
     Dosage: 0.5MG IV. 9/26-9/20    3DAYS.
  2. METHOTREXATE (METHOTREXATE) [Concomitant]

REACTIONS (4)
  - Femoral artery occlusion [None]
  - Peripheral arterial occlusive disease [None]
  - Peripheral arterial occlusive disease [None]
  - Arterial occlusive disease [None]
